FAERS Safety Report 6329130-4 (Version None)
Quarter: 2009Q3

REPORT INFORMATION
  Report Type: 
  Country: None (occurrence: None)
  Receive Date: 20090826
  Receipt Date: 20090814
  Transmission Date: 20100115
  Serious: Yes (Hospitalization)
  Sender: FDA-Public Use
  Company Number: US-ROCHE-651048

PATIENT
  Sex: Male

DRUGS (4)
  1. TAMIFLU [Suspect]
     Route: 048
     Dates: start: 20090714, end: 20090806
  2. TAMIFLU [Suspect]
     Route: 065
     Dates: start: 20090708, end: 20090714
  3. TAMIFLU [Suspect]
     Route: 065
     Dates: start: 20090601, end: 20090620
  4. IMMUNOSUPPRESSANTS NOS [Concomitant]

REACTIONS (2)
  - DRUG INEFFECTIVE [None]
  - STAPHYLOCOCCAL INFECTION [None]
